FAERS Safety Report 6754575-8 (Version None)
Quarter: 2010Q2

REPORT INFORMATION
  Report Type: 
  Country: None (occurrence: None)
  Receive Date: 20100603
  Receipt Date: 20100528
  Transmission Date: 20101027
  Serious: Yes (Other)
  Sender: FDA-Public Use
  Company Number: US-ALLERGAN-1007052US

PATIENT
  Age: 78 Year
  Sex: Female

DRUGS (2)
  1. BOTOX [Suspect]
     Indication: TORTICOLLIS
     Dosage: UNK, SINGLE
     Route: 030
     Dates: start: 20100504, end: 20100504
  2. COUMADIN [Concomitant]

REACTIONS (8)
  - ASTHENIA [None]
  - BITE [None]
  - DRY MOUTH [None]
  - DYSARTHRIA [None]
  - INJECTION SITE HAEMORRHAGE [None]
  - MUSCULAR WEAKNESS [None]
  - NECK PAIN [None]
  - OVERDOSE [None]
